FAERS Safety Report 23402168 (Version 1)
Quarter: 2024Q1

REPORT INFORMATION
  Report Type: Spontaneous
  Country: PL (occurrence: None)
  Receive Date: 20240115
  Receipt Date: 20240115
  Transmission Date: 20240409
  Serious: Yes (Death, Life-Threatening, Hospitalization)
  Sender: FDA-Public Use
  Company Number: 2024A010600

PATIENT
  Age: 49 Year
  Sex: Male
  Weight: 78 kg

DRUGS (2)
  1. IMFINZI [Suspect]
     Active Substance: DURVALUMAB
     Indication: Non-small cell lung cancer stage III
     Dosage: 1500.0MG UNKNOWN
     Route: 042
     Dates: start: 202307, end: 202312
  2. IMFINZI [Suspect]
     Active Substance: DURVALUMAB
     Indication: Treponema test
     Dosage: 1500.0MG UNKNOWN
     Route: 042
     Dates: start: 202307, end: 202312

REACTIONS (2)
  - Hepatitis [Fatal]
  - Loss of consciousness [Unknown]

NARRATIVE: CASE EVENT DATE: 20231201
